FAERS Safety Report 7668826-9 (Version None)
Quarter: 2011Q3

REPORT INFORMATION
  Report Type: 
  Country: None (occurrence: None)
  Receive Date: 20110808
  Receipt Date: 20110801
  Transmission Date: 20111222
  Serious: Yes (Hospitalization)
  Sender: FDA-Public Use
  Company Number: US-US-EMD SERONO, INC.-7067617

PATIENT
  Sex: Male
  Weight: 82 kg

DRUGS (6)
  1. REBIF [Suspect]
     Route: 058
     Dates: start: 20110511, end: 20110525
  2. REBIF [Suspect]
     Route: 058
     Dates: start: 20110525
  3. TYLENOL PM [Concomitant]
     Indication: PREMEDICATION
  4. REBIF [Suspect]
     Indication: MULTIPLE SCLEROSIS
     Route: 058
     Dates: start: 20110427, end: 20110511
  5. REBIF [Suspect]
     Route: 058
     Dates: start: 20110613, end: 20110620
  6. REBIF [Suspect]
     Route: 058
     Dates: start: 20110706

REACTIONS (6)
  - STREPTOCOCCAL URINARY TRACT INFECTION [None]
  - ANGER [None]
  - MALAISE [None]
  - CYSTITIS [None]
  - MULTIPLE SCLEROSIS RELAPSE [None]
  - IRRITABILITY [None]
